FAERS Safety Report 17231878 (Version 5)
Quarter: 2020Q2

REPORT INFORMATION
  Report Type: Spontaneous
  Country: US (occurrence: US)
  Receive Date: 20200103
  Receipt Date: 20200623
  Transmission Date: 20200713
  Serious: No
  Sender: FDA-Public Use
  Company Number: US-PFIZER INC-2019563067

PATIENT
  Age: 71 Year
  Sex: Male

DRUGS (2)
  1. INSPRA [Suspect]
     Active Substance: EPLERENONE
     Indication: HEPATIC CIRRHOSIS
     Dosage: 50 MG, 1X/DAY
  2. INSPRA [Suspect]
     Active Substance: EPLERENONE
     Dosage: 100 MG,1X/DAY (TAKING 2 TABLETS BY MOUTH ONCE DAILY)
     Route: 048
     Dates: start: 20200526

REACTIONS (6)
  - Product use in unapproved indication [Unknown]
  - Somnolence [Unknown]
  - Dyspnoea [Unknown]
  - Product dispensing issue [Unknown]
  - Off label use [Unknown]
  - Product use issue [Unknown]

NARRATIVE: CASE EVENT DATE: 20200526
